FAERS Safety Report 9922183 (Version 2)
Quarter: 2014Q1

REPORT INFORMATION
  Report Type: Report from Study
  Country: US (occurrence: US)
  Receive Date: 20140225
  Receipt Date: 20140225
  Transmission Date: 20141002
  Serious: Yes (Hospitalization)
  Sender: FDA-Public Use
  Company Number: US-SA-POMP-1003129

PATIENT
  Age: 2 Year
  Sex: Male
  Weight: 9.6 kg

DRUGS (8)
  1. ALGLUCOSIDASE ALFA [Suspect]
     Indication: GLYCOGEN STORAGE DISEASE TYPE II
     Dosage: 250 MG, QW
     Route: 042
     Dates: start: 20120309
  2. OMEPRAZOLE [Concomitant]
     Dosage: 10 MG, QD
  3. PROPRANOLOL [Concomitant]
     Indication: SUPRAVENTRICULAR TACHYCARDIA
     Dosage: 2 MG, TID
  4. FUROSEMIDE [Concomitant]
     Dosage: 10 MG, BID
  5. VITAMINS NOS [Concomitant]
  6. COLECALCIFEROL [Concomitant]
     Dosage: UNK
  7. TOCOPHERYL ACETATE [Concomitant]
     Dosage: UNK
  8. MACROGOL [Concomitant]
     Indication: CONSTIPATION
     Dosage: UNK

REACTIONS (1)
  - Respiratory tract infection [Recovered/Resolved]
